FAERS Safety Report 18235680 (Version 1)
Quarter: 2020Q3

REPORT INFORMATION
  Report Type: Other
  Country: CA (occurrence: CA)
  Receive Date: 20200905
  Receipt Date: 20200905
  Transmission Date: 20201103
  Serious: Yes (Death, Hospitalization, Other)
  Sender: FDA-Public Use
  Company Number: CA-ACCORD-199250

PATIENT
  Age: 4 Month
  Sex: Female

DRUGS (9)
  1. ETOPOSIDE. [Concomitant]
     Active Substance: ETOPOSIDE
  2. VINCRISTINE [Concomitant]
     Active Substance: VINCRISTINE
  3. THIOTEPA. [Suspect]
     Active Substance: THIOTEPA
     Indication: ATYPICAL TERATOID/RHABDOID TUMOUR OF CNS
     Dosage: 1 EVERY 1 DAYS
  4. CYCLOPHOSPHAMIDE/CYCLOPHOSPHAMIDE MONOHYDRATE [Concomitant]
     Active Substance: CYCLOPHOSPHAMIDE
  5. METHYLPREDNISOLONE. [Suspect]
     Active Substance: METHYLPREDNISOLONE
     Indication: PRODUCT USED FOR UNKNOWN INDICATION
     Dosage: FOR INJECTION, 11 EVERY 1 DAYS
     Route: 042
  6. CISPLATIN. [Concomitant]
     Active Substance: CISPLATIN
  7. CARBOPLATIN. [Suspect]
     Active Substance: CARBOPLATIN
     Indication: ATYPICAL TERATOID/RHABDOID TUMOUR OF CNS
     Dosage: 1 EVERY 1 DAYS
     Route: 065
  8. INOMAX [Concomitant]
     Active Substance: NITRIC OXIDE
     Dosage: GAS FOR INHALATION
  9. METHOTREXATE. [Concomitant]
     Active Substance: METHOTREXATE

REACTIONS (3)
  - Pulmonary vascular disorder [Fatal]
  - Pulmonary arterial hypertension [Fatal]
  - Off label use [Unknown]
